FAERS Safety Report 14007962 (Version 3)
Quarter: 2017Q4

REPORT INFORMATION
  Report Type: Spontaneous
  Country: US (occurrence: US)
  Receive Date: 20170925
  Receipt Date: 20171213
  Transmission Date: 20180321
  Serious: No
  Sender: FDA-Public Use
  Company Number: US-GLAXOSMITHKLINE-US2017GSK145508

PATIENT
  Age: 69 Year
  Sex: Female

DRUGS (10)
  1. LIPITOR [Concomitant]
     Active Substance: ATORVASTATIN CALCIUM
  2. HYDROCHLOROTHIAZIDE. [Concomitant]
     Active Substance: HYDROCHLOROTHIAZIDE
  3. AZELATINE [Concomitant]
  4. ATENOLOL. [Concomitant]
     Active Substance: ATENOLOL
  5. PANTOPRAZOLE [Concomitant]
     Active Substance: PANTOPRAZOLE
  6. BREO ELLIPTA [Suspect]
     Active Substance: FLUTICASONE FUROATE\VILANTEROL TRIFENATATE
     Indication: ASTHMA
     Dosage: 1 PUFF(S), QD
     Route: 048
  7. ENALAPRIL [Concomitant]
     Active Substance: ENALAPRIL
  8. METFORMIN [Concomitant]
     Active Substance: METFORMIN HYDROCHLORIDE
  9. PHENOBARBITAL. [Concomitant]
     Active Substance: PHENOBARBITAL
  10. INCRUSE ELLIPTA [Suspect]
     Active Substance: UMECLIDINIUM BROMIDE
     Indication: CHRONIC OBSTRUCTIVE PULMONARY DISEASE
     Dosage: 1 PUFF(S), 1D
     Route: 055
     Dates: start: 201711

REACTIONS (12)
  - Dry mouth [Recovering/Resolving]
  - Glossodynia [Not Recovered/Not Resolved]
  - Tongue discomfort [Recovering/Resolving]
  - Oropharyngeal pain [Not Recovered/Not Resolved]
  - Drug dose omission [Unknown]
  - Oral candidiasis [Recovering/Resolving]
  - Product quality issue [Unknown]
  - Nasopharyngitis [Unknown]
  - Wrong technique in device usage process [Unknown]
  - Lower respiratory tract congestion [Not Recovered/Not Resolved]
  - Oral discomfort [Recovering/Resolving]
  - Tongue eruption [Unknown]

NARRATIVE: CASE EVENT DATE: 201709
